FAERS Safety Report 7632247-5 (Version None)
Quarter: 2011Q3

REPORT INFORMATION
  Report Type: 
  Country: None (occurrence: None)
  Receive Date: 20110725
  Receipt Date: 20100706
  Transmission Date: 20111222
  Serious: Yes (Other)
  Sender: FDA-Public Use
  Company Number: US-BRISTOL-MYERS SQUIBB COMPANY-15179625

PATIENT
  Age: 88 Year
  Sex: Male

DRUGS (9)
  1. PREDNISONE [Concomitant]
  2. NEXIUM [Concomitant]
  3. COLCHICINE [Concomitant]
  4. OMEPRAZOLE [Concomitant]
  5. REQUIP [Concomitant]
  6. BONIVA [Concomitant]
  7. CALCITRATE [Concomitant]
  8. FLOMAX [Concomitant]
  9. COUMADIN [Suspect]

REACTIONS (1)
  - INTERNATIONAL NORMALISED RATIO DECREASED [None]
